FAERS Safety Report 17248286 (Version 2)
Quarter: 2020Q1

REPORT INFORMATION
  Report Type: Spontaneous
  Country: CN (occurrence: CN)
  Receive Date: 20200108
  Receipt Date: 20200114
  Transmission Date: 20200409
  Serious: Yes (Death, Other)
  Sender: FDA-Public Use
  Company Number: CN-ASTRAZENECA-2020SE02700

PATIENT
  Age: 65 Year
  Sex: Male

DRUGS (2)
  1. OSIMERTINIB. [Suspect]
     Active Substance: OSIMERTINIB
     Indication: SQUAMOUS CELL CARCINOMA OF LUNG
     Route: 048
  2. GEFITINIB. [Suspect]
     Active Substance: GEFITINIB
     Indication: SQUAMOUS CELL CARCINOMA OF LUNG
     Route: 048

REACTIONS (4)
  - EGFR gene mutation [Unknown]
  - Malignant neoplasm progression [Fatal]
  - Acquired gene mutation [Unknown]
  - Rash [Recovered/Resolved]
